FAERS Safety Report 17327051 (Version 1)
Quarter: 2020Q1

REPORT INFORMATION
  Report Type: Spontaneous
  Country: US (occurrence: US)
  Receive Date: 20200127
  Receipt Date: 20200127
  Transmission Date: 20200409
  Serious: No
  Sender: FDA-Public Use
  Company Number: US-REGENERON PHARMACEUTICALS, INC.-2019-32411

PATIENT

DRUGS (2)
  1. EYLEA [Suspect]
     Active Substance: AFLIBERCEPT
     Indication: PRODUCT USED FOR UNKNOWN INDICATION
     Dosage: 0.05 CC, Q5W, LEFT EYE
     Route: 031
     Dates: start: 20190226
  2. EYLEA [Suspect]
     Active Substance: AFLIBERCEPT
     Dosage: 0.05 CC, Q5W, LEFT EYE, LAST DOSE
     Route: 031
     Dates: start: 20190507, end: 20190507

REACTIONS (3)
  - Off label use [Unknown]
  - Eye laser scar [Recovered/Resolved]
  - Glaucoma drainage device placement [Unknown]
